FAERS Safety Report 15928662 (Version 3)
Quarter: 2019Q2

REPORT INFORMATION
  Report Type: Report from Study
  Country: US (occurrence: US)
  Receive Date: 20190206
  Receipt Date: 20190424
  Transmission Date: 20190711
  Serious: Yes (Hospitalization, Other)
  Sender: FDA-Public Use
  Company Number: US-EXELIXIS-XL18419018552

PATIENT
  Age: 63 Year
  Sex: Female
  Weight: 97.7 kg

DRUGS (6)
  1. DRISDOL [Concomitant]
     Active Substance: ERGOCALCIFEROL
  2. CLARITIN [Concomitant]
     Active Substance: LORATADINE
  3. VITAMIN D2 [Concomitant]
     Active Substance: ERGOCALCIFEROL
  4. SYNTHROID [Concomitant]
     Active Substance: LEVOTHYROXINE SODIUM
  5. NIVOLUMAB [Suspect]
     Active Substance: NIVOLUMAB
     Indication: ENDOMETRIAL ADENOCARCINOMA
     Dosage: 240 MG, OVER 60 MINUTES ON DAYS 1 AND 15
     Route: 042
     Dates: start: 20180822
  6. XL184 [Suspect]
     Active Substance: CABOZANTINIB
     Indication: ENDOMETRIAL ADENOCARCINOMA
     Dosage: 40 MG, QD
     Route: 048
     Dates: start: 20180822

REACTIONS (5)
  - Cough [Recovered/Resolved]
  - Pneumonia [Recovered/Resolved]
  - Pneumonitis [Recovered/Resolved]
  - Pulmonary oedema [Recovering/Resolving]
  - Dyspnoea [Recovered/Resolved]

NARRATIVE: CASE EVENT DATE: 20181206
